FAERS Safety Report 10733333 (Version 4)
Quarter: 2015Q2

REPORT INFORMATION
  Report Type: Spontaneous
  Country: US (occurrence: US)
  Receive Date: 20150123
  Receipt Date: 20150505
  Transmission Date: 20150821
  Serious: No
  Sender: FDA-Public Use
  Company Number: US-009507513-0302USA00559

PATIENT
  Sex: Male
  Weight: 93.88 kg

DRUGS (1)
  1. PROPECIA [Suspect]
     Active Substance: FINASTERIDE
     Indication: ALOPECIA
     Dosage: 1 MG, QD
     Route: 048
     Dates: start: 1999, end: 2003

REACTIONS (44)
  - Prostatitis [Not Recovered/Not Resolved]
  - Abdominal pain [Unknown]
  - Muscular weakness [Unknown]
  - Anorgasmia [Unknown]
  - Disturbance in attention [Unknown]
  - Memory impairment [Unknown]
  - Depression [Unknown]
  - Orchitis [Unknown]
  - Dysgeusia [Unknown]
  - Vitamin D deficiency [Unknown]
  - Tremor [Unknown]
  - Constipation [Unknown]
  - Oropharyngeal pain [Unknown]
  - Nocturia [Unknown]
  - Androgen deficiency [Unknown]
  - Hypogonadism male [Unknown]
  - Sexual dysfunction [Unknown]
  - Erectile dysfunction [Unknown]
  - Drug ineffective [Unknown]
  - Anxiety [Not Recovered/Not Resolved]
  - Muscle twitching [Unknown]
  - Sleep apnoea syndrome [Unknown]
  - Back pain [Unknown]
  - Epididymitis [Unknown]
  - Paraesthesia [Unknown]
  - Skin wrinkling [Unknown]
  - Musculoskeletal discomfort [Unknown]
  - Arthralgia [Unknown]
  - Cognitive disorder [Unknown]
  - Stress [Unknown]
  - Hypercholesterolaemia [Unknown]
  - Parosmia [Unknown]
  - Apathy [Unknown]
  - Dysarthria [Unknown]
  - Libido decreased [Unknown]
  - Chest discomfort [Unknown]
  - Brain neoplasm benign [Unknown]
  - Hypothyroidic goitre [Unknown]
  - Gastrooesophageal reflux disease [Unknown]
  - Flatulence [Unknown]
  - Fatigue [Unknown]
  - Paraesthesia [Unknown]
  - Muscular weakness [Unknown]
  - Adverse event [Unknown]

NARRATIVE: CASE EVENT DATE: 2000
